FAERS Safety Report 18786247 (Version 1)
Quarter: 2021Q1

REPORT INFORMATION
  Report Type: Spontaneous
  Country: US (occurrence: US)
  Receive Date: 20210126
  Receipt Date: 20210126
  Transmission Date: 20210419
  Serious: Yes (Life-Threatening, Hospitalization, Other)
  Sender: FDA-Public Use
  Company Number: US-DRREDDYS-USA/USA/21/0131276

PATIENT
  Age: 10 Year
  Sex: Male

DRUGS (6)
  1. FLUPHENAZINE [Suspect]
     Active Substance: FLUPHENAZINE
     Indication: BEHAVIOUR DISORDER
  2. RISPERIDONE. [Suspect]
     Active Substance: RISPERIDONE
     Indication: BEHAVIOUR DISORDER
  3. CANNABIDIOL [Concomitant]
     Active Substance: CANNABIDIOL
     Indication: BEHAVIOUR DISORDER
  4. VALPROIC ACID. [Concomitant]
     Active Substance: VALPROIC ACID
     Indication: BEHAVIOUR DISORDER
  5. CLONIDINE. [Concomitant]
     Active Substance: CLONIDINE
     Indication: BEHAVIOUR DISORDER
  6. CLOBAZAM. [Concomitant]
     Active Substance: CLOBAZAM
     Indication: BEHAVIOUR DISORDER

REACTIONS (2)
  - Neuroleptic malignant syndrome [Recovered/Resolved]
  - Encephalopathy [Recovered/Resolved]
